FAERS Safety Report 14612389 (Version 1)
Quarter: 2018Q1

REPORT INFORMATION
  Report Type: Spontaneous
  Country: ES (occurrence: ES)
  Receive Date: 20180308
  Receipt Date: 20180308
  Transmission Date: 20180509
  Serious: Yes (Other)
  Sender: FDA-Public Use
  Company Number: ES-AUROBINDO-AUR-APL-2018-011859

PATIENT
  Age: 48 Year
  Sex: Male

DRUGS (6)
  1. RISPERIDONE. [Suspect]
     Active Substance: RISPERIDONE
     Indication: SCHIZOPHRENIA
     Dosage: DOSAGE FORM: UNSPECIFIED
     Route: 048
     Dates: start: 20170921
  2. RISPERIDONE. [Suspect]
     Active Substance: RISPERIDONE
     Dosage: DOSAGE FORM: UNSPECIFIED
     Route: 048
     Dates: start: 20170921, end: 20180112
  3. XEPLION [Suspect]
     Active Substance: PALIPERIDONE PALMITATE
     Indication: SCHIZOPHRENIA
     Dosage: 100 MILLIGRAM
     Route: 030
     Dates: start: 20150517, end: 20170921
  4. HARVONI [Interacting]
     Active Substance: LEDIPASVIR\SOFOSBUVIR
     Indication: HEPATITIS C
     Dosage: DOSAGE FORM: UNSPECIFIED ()
     Route: 065
     Dates: start: 20170921, end: 20171218
  5. XEPLION [Suspect]
     Active Substance: PALIPERIDONE PALMITATE
     Route: 030
     Dates: end: 20180112
  6. XEPLION [Suspect]
     Active Substance: PALIPERIDONE PALMITATE
     Route: 030
     Dates: start: 20150517

REACTIONS (5)
  - Hallucination [Unknown]
  - Inappropriate schedule of drug administration [Unknown]
  - Drug interaction [Unknown]
  - Off label use [Unknown]
  - Psychotic symptom [Recovering/Resolving]
